FAERS Safety Report 5774058-1 (Version None)
Quarter: 2008Q2

REPORT INFORMATION
  Report Type: 
  Country: None (occurrence: None)
  Receive Date: 20080601
  Receipt Date: 20080103
  Transmission Date: 20081010
  Serious: No
  Sender: FDA-Public Use
  Company Number: 2006PV011056

PATIENT
  Age: 60 Year
  Sex: Female
  Weight: 54.4 kg

DRUGS (9)
  1. EXENATIDE(EXENATIDE) PEN,DISPOSABLE [Suspect]
     Indication: TYPE 2 DIABETES MELLITUS
     Dosage: 5 UG, 2/D, SUBCUTANEOUS
     Route: 058
     Dates: start: 20060328
  2. GLIPIZIDE [Concomitant]
  3. DRUG USED IN DIABETES [Concomitant]
  4. CRESTOR [Concomitant]
  5. NEXIUM [Concomitant]
  6. OMEPRAZOLE [Concomitant]
  7. VYTORIN [Concomitant]
  8. METFORMIN HCL [Concomitant]
  9. LISINOPRIL /USA/ (LISINOPRIL) [Concomitant]

REACTIONS (3)
  - ABDOMINAL DISTENSION [None]
  - INJECTION SITE BRUISING [None]
  - NAUSEA [None]
